FAERS Safety Report 8441621-9 (Version None)
Quarter: 2012Q2

REPORT INFORMATION
  Report Type: 
  Country: None (occurrence: None)
  Receive Date: 20120615
  Receipt Date: 20111013
  Transmission Date: 20120825
  Serious: No
  Sender: FDA-Public Use
  Company Number: US-NOVEN-11US003426

PATIENT
  Age: 5 Year
  Sex: Male
  Weight: 17.687 kg

DRUGS (3)
  1. DAYTRANA [Suspect]
     Indication: AUTISM SPECTRUM DISORDER
     Dosage: 10 MG, QD
     Route: 062
     Dates: start: 20110922
  2. MELATONIN [Concomitant]
     Indication: POOR QUALITY SLEEP
  3. CLONIDINE [Concomitant]
     Indication: AUTISM

REACTIONS (5)
  - PRODUCT QUALITY ISSUE [None]
  - OFF LABEL USE [None]
  - INCORRECT DRUG ADMINISTRATION DURATION [None]
  - DRUG ADMINISTRATION ERROR [None]
  - ABNORMAL BEHAVIOUR [None]
